FAERS Safety Report 9921249 (Version 1)
Quarter: 2014Q1

REPORT INFORMATION
  Report Type: Spontaneous
  Country: US (occurrence: None)
  Receive Date: 20140221
  Receipt Date: 20140221
  Transmission Date: 20141002
  Serious: Yes (Hospitalization, Other)
  Sender: FDA-Public Use
  Company Number: None

PATIENT
  Age: 56 Year
  Sex: Female
  Weight: 57.61 kg

DRUGS (4)
  1. BONIVA [Suspect]
     Indication: OSTEOPOROSIS
     Dates: start: 20140116
  2. NEXIUM [Suspect]
  3. NEXIUM [Concomitant]
  4. PREMARINE VAGINAL CREAM [Concomitant]

REACTIONS (4)
  - Influenza [None]
  - Nausea [None]
  - Vomiting [None]
  - Pain [None]
